FAERS Safety Report 26069485 (Version 1)
Quarter: 2025Q4

REPORT INFORMATION
  Report Type: Spontaneous
  Country: US (occurrence: US)
  Receive Date: 20251120
  Receipt Date: 20251120
  Transmission Date: 20260117
  Serious: Yes (Life-Threatening, Hospitalization, Other)
  Sender: RANBAXY
  Company Number: US-SUN PHARMACEUTICAL INDUSTRIES INC-2025R1-537237

PATIENT
  Age: 14 Year
  Sex: Female

DRUGS (1)
  1. PHENTERMINE [Suspect]
     Active Substance: PHENTERMINE
     Indication: Product used for unknown indication
     Dosage: 37.5 MILLIGRAM, 34 MG/KG
     Route: 048

REACTIONS (5)
  - Intentional overdose [Unknown]
  - Vomiting [Unknown]
  - Tachycardia [Unknown]
  - Agitation [Recovered/Resolved]
  - Hallucination, visual [Unknown]
